FAERS Safety Report 7381856-X (Version None)
Quarter: 2011Q1

REPORT INFORMATION
  Report Type: 
  Country: None (occurrence: None)
  Receive Date: 20110329
  Receipt Date: 20110321
  Transmission Date: 20110831
  Serious: Yes (Hospitalization)
  Sender: FDA-Public Use
  Company Number: FR-PFIZER INC-2011062386

PATIENT
  Age: 51 Year
  Sex: Female

DRUGS (6)
  1. CLAMOXYL [Suspect]
     Dosage: UNK
     Dates: start: 20101103, end: 20101214
  2. RIFADIN [Suspect]
     Dosage: UNK
     Dates: start: 20101101, end: 20101214
  3. CALCIPARINE [Concomitant]
     Dosage: 0.3 ML, 2X/DAY
     Route: 058
  4. CALCIDIA [Concomitant]
     Dosage: 1 DF, 1X/DAY
  5. DALACINE [Suspect]
     Dosage: 600 MG, 3X/DAY
     Route: 048
     Dates: start: 20101111, end: 20101203
  6. PEVARYL [Concomitant]

REACTIONS (3)
  - RENAL FAILURE [None]
  - RASH [None]
  - DIARRHOEA [None]
